FAERS Safety Report 9652884 (Version 2)
Quarter: 2013Q4

REPORT INFORMATION
  Report Type: Spontaneous
  Country: US (occurrence: US)
  Receive Date: 20131029
  Receipt Date: 20131105
  Transmission Date: 20140711
  Serious: No
  Sender: FDA-Public Use
  Company Number: US-009507513-1310USA013213

PATIENT
  Age: 68 Year
  Sex: Female
  Weight: 90.7 kg

DRUGS (5)
  1. OXYTROL FOR WOMEN [Suspect]
     Indication: INCONTINENCE
     Dosage: 1 DF, ONCE
     Route: 062
     Dates: start: 20130920, end: 20130924
  2. ATENOLOL [Concomitant]
     Indication: HYPERTENSION
     Dosage: UNK, UNKNOWN
  3. FAMOTIDINE [Concomitant]
     Indication: GASTROOESOPHAGEAL REFLUX DISEASE
     Dosage: UNK, UNKNOWN
  4. NITROGLYCERIN [Concomitant]
     Indication: OESOPHAGEAL SPASM
     Dosage: UNK, UNKNOWN
  5. AMBIEN [Concomitant]
     Indication: INSOMNIA
     Dosage: UNK, UNKNOWN

REACTIONS (3)
  - Application site hypersensitivity [Unknown]
  - Application site erythema [Not Recovered/Not Resolved]
  - Pruritus [Unknown]
